FAERS Safety Report 7068424-4 (Version None)
Quarter: 2010Q4

REPORT INFORMATION
  Report Type: 
  Country: None (occurrence: None)
  Receive Date: 20101028
  Receipt Date: 20101025
  Transmission Date: 20110411
  Serious: Yes (Hospitalization)
  Sender: FDA-Public Use
  Company Number: B0681024A

PATIENT
  Sex: Female

DRUGS (7)
  1. AUGMENTIN '125' [Suspect]
     Indication: PRODUCT USED FOR UNKNOWN INDICATION
     Dosage: 2G PER DAY
     Route: 048
     Dates: start: 20100904, end: 20100910
  2. TETANUS VACCINE (NON-GSK) [Suspect]
     Indication: PROPHYLAXIS
     Dosage: 40IU SINGLE DOSE
     Route: 030
     Dates: start: 20100911, end: 20100911
  3. IBUPROFEN TABLETS [Suspect]
     Indication: PRODUCT USED FOR UNKNOWN INDICATION
     Dosage: 2UNIT PER DAY
     Route: 048
     Dates: start: 20100904, end: 20100910
  4. DOLIPRANE [Suspect]
     Indication: PRODUCT USED FOR UNKNOWN INDICATION
     Dosage: 2UNIT PER DAY
     Route: 048
     Dates: start: 20100904, end: 20100910
  5. TETRAZEPAM [Suspect]
     Indication: PRODUCT USED FOR UNKNOWN INDICATION
     Dosage: 50MG PER DAY
     Route: 048
     Dates: start: 20100903, end: 20100908
  6. GINKOR FORT [Suspect]
     Indication: PRODUCT USED FOR UNKNOWN INDICATION
     Dosage: 2CAP PER DAY
     Route: 048
     Dates: start: 20100904, end: 20100910
  7. BISEPTINE [Suspect]
     Indication: PRODUCT USED FOR UNKNOWN INDICATION
     Route: 061
     Dates: start: 20100904, end: 20100909

REACTIONS (5)
  - EOSINOPHILIA [None]
  - NEUTROPHILIA [None]
  - PRURIGO [None]
  - PYREXIA [None]
  - RASH MACULO-PAPULAR [None]
